FAERS Safety Report 8256809-X (Version None)
Quarter: 2012Q2

REPORT INFORMATION
  Report Type: 
  Country: None (occurrence: None)
  Receive Date: 20120403
  Receipt Date: 20120329
  Transmission Date: 20120825
  Serious: Yes (Life-Threatening, Hospitalization)
  Sender: FDA-Public Use
  Company Number: PHHO2012FR005142

PATIENT
  Sex: Male

DRUGS (3)
  1. RAD 666 / RAD 001A [Suspect]
     Indication: RENAL TRANSPLANT
     Dosage: 4 MG, QD
     Route: 002
     Dates: start: 20120131
  2. PREDNISONE TAB [Suspect]
     Indication: RENAL TRANSPLANT
     Dosage: 70 MG, QD
     Route: 002
     Dates: start: 20120127
  3. MYCOPHENOLATE MOFETIL (CELLCEPT) [Suspect]
     Indication: RENAL TRANSPLANT
     Dosage: 3 G, QD
     Route: 002
     Dates: start: 20120126

REACTIONS (4)
  - LEFT VENTRICULAR FAILURE [None]
  - RESPIRATORY DISTRESS [None]
  - LUNG INFECTION [None]
  - PLEURAL EFFUSION [None]
